FAERS Safety Report 6259991-9 (Version None)
Quarter: 2009Q3

REPORT INFORMATION
  Report Type: 
  Country: None (occurrence: None)
  Receive Date: 20090708
  Receipt Date: 20090701
  Transmission Date: 20100115
  Serious: Yes (Disabling, Other)
  Sender: FDA-Public Use
  Company Number: US-ASTRAZENECA-2009UW14166

PATIENT
  Age: 10951 Day
  Sex: Male
  Weight: 74.8 kg

DRUGS (6)
  1. SEROQUEL XR [Suspect]
     Indication: BIPOLAR DISORDER
     Route: 048
  2. SEROQUEL XR [Suspect]
     Route: 048
  3. SEROQUEL XR [Suspect]
     Dosage: TITRATED UP TO 300 MG
     Route: 048
  4. LAMICTAL [Concomitant]
     Dates: start: 20090505, end: 20090602
  5. LITHIUM CARBONATE [Concomitant]
     Dosage: 600 MG IN THE AM, 600 MG AT NOON, 900 MG AT NIGHT
     Dates: start: 20090416
  6. ATIVAN [Concomitant]
     Dates: start: 20090416

REACTIONS (2)
  - DIPLOPIA [None]
  - VISION BLURRED [None]
